FAERS Safety Report 16691227 (Version 5)
Quarter: 2020Q4

REPORT INFORMATION
  Report Type: Spontaneous
  Country: AU (occurrence: AU)
  Receive Date: 20190812
  Receipt Date: 20201210
  Transmission Date: 20210113
  Serious: Yes (Other)
  Sender: FDA-Public Use
  Company Number: AU-BEH-2019105228

PATIENT
  Age: 76 Year
  Sex: Female
  Weight: 77.25 kg

DRUGS (4)
  1. LORATADINE. [Concomitant]
     Active Substance: LORATADINE
     Indication: UNEVALUABLE EVENT
     Dosage: 10 MILLIGRAM
     Route: 048
     Dates: start: 20190726
  2. HIZENTRA [Suspect]
     Active Substance: HUMAN IMMUNOGLOBULIN G
     Indication: CHRONIC LYMPHOCYTIC LEUKAEMIA
     Dosage: 32 GRAM IN 4 DIVISIONS
     Route: 058
     Dates: start: 20190725
  3. INTRAGAM P [Suspect]
     Active Substance: HUMAN IMMUNOGLOBULIN G
     Indication: PRODUCT USED FOR UNKNOWN INDICATION
     Dosage: UNK
     Route: 065
     Dates: start: 2014
  4. HIZENTRA [Suspect]
     Active Substance: HUMAN IMMUNOGLOBULIN G
     Indication: IMMUNE THROMBOCYTOPENIA
     Dosage: 8 GRAM WITH REGULATOR TUBING AND SPRINGFUSOR
     Route: 058
     Dates: start: 20190726, end: 20190726

REACTIONS (9)
  - Rash pruritic [Not Recovered/Not Resolved]
  - Rash [Not Recovered/Not Resolved]
  - Product use in unapproved indication [Unknown]
  - Skin warm [Not Recovered/Not Resolved]
  - Local reaction [Unknown]
  - Rash maculo-papular [Not Recovered/Not Resolved]
  - No adverse event [Unknown]
  - Food interaction [Unknown]
  - Adverse drug reaction [Unknown]

NARRATIVE: CASE EVENT DATE: 20190725
